FAERS Safety Report 18246722 (Version 1)
Quarter: 2020Q3

REPORT INFORMATION
  Report Type: Spontaneous
  Country: US (occurrence: US)
  Receive Date: 20200501
  Receipt Date: 20200501
  Transmission Date: 20201103
  Serious: No
  Sender: FDA-Public Use
  Company Number: None

PATIENT
  Sex: Male

DRUGS (6)
  1. INTERFERON ALFA?2B [Suspect]
     Active Substance: INTERFERON ALFA-2B
  2. MOXIFLOXACIN. [Suspect]
     Active Substance: MOXIFLOXACIN
     Dosage: ?          OTHER DOSE:0.4MG;?
  3. THYMALFASIN [Suspect]
     Active Substance: THYMALFASIN
  4. LOPINAVIR?RITONAVIR [Suspect]
     Active Substance: LOPINAVIR\RITONAVIR
     Dosage: ?          OTHER DOSE:800/200MG;?
  5. METHYLPREDNISOLONE. [Suspect]
     Active Substance: METHYLPREDNISOLONE
  6. QINGFEI PAIDU DECOCTION [Suspect]
     Active Substance: HERBALS

REACTIONS (1)
  - Off label use [None]
